FAERS Safety Report 4576856-9 (Version None)
Quarter: 2005Q1

REPORT INFORMATION
  Report Type: 
  Country: None (occurrence: None)
  Receive Date: 20050207
  Receipt Date: 20050120
  Transmission Date: 20050727
  Serious: Yes (Death, Hospitalization)
  Sender: FDA-Public Use
  Company Number: 187455

PATIENT
  Sex: Female
  Weight: 92.9874 kg

DRUGS (22)
  1. AVONEX [Suspect]
     Indication: MULTIPLE SCLEROSIS
     Dosage: IM
     Route: 030
     Dates: end: 20020101
  2. LIDODERM [Concomitant]
  3. VIOXX [Concomitant]
  4. SENOKOT [Concomitant]
  5. PAXIL [Concomitant]
  6. PREVACID [Concomitant]
  7. LEVOTHROID [Concomitant]
  8. BACLOFEN [Concomitant]
  9. AMBIEN [Concomitant]
  10. ASPIRIN [Concomitant]
  11. KLONOPIN [Concomitant]
  12. CLIMARA [Concomitant]
  13. MULTI-VITAMINS [Concomitant]
  14. OSCAL [Concomitant]
  15. MIACALCIN [Concomitant]
  16. FLORA [Concomitant]
  17. BACTRIM [Concomitant]
  18. AMITRIPTYLINE [Concomitant]
  19. DITROPAN [Concomitant]
  20. PREDNISONE [Concomitant]
  21. ENEMA [Concomitant]
  22. ZANAFLEX [Concomitant]

REACTIONS (18)
  - CONDITION AGGRAVATED [None]
  - DERMAL CYST [None]
  - DISEASE RECURRENCE [None]
  - DYSURIA [None]
  - ENTEROCOCCAL INFECTION [None]
  - FALL [None]
  - FIBULA FRACTURE [None]
  - FUNGAL INFECTION [None]
  - HEART RATE INCREASED [None]
  - MULTIPLE SCLEROSIS [None]
  - MYELITIS TRANSVERSE [None]
  - OSTEOPENIA [None]
  - PULMONARY EMBOLISM [None]
  - RESPIRATORY TRACT CONGESTION [None]
  - RESPIRATORY TRACT INFECTION [None]
  - UPPER RESPIRATORY TRACT INFECTION [None]
  - URINARY TRACT INFECTION BACTERIAL [None]
  - VAGINAL DISCHARGE [None]
